FAERS Safety Report 4543536-5 (Version None)
Quarter: 2004Q4

REPORT INFORMATION
  Report Type: 
  Country: None (occurrence: None)
  Receive Date: 20041229
  Receipt Date: 20041229
  Transmission Date: 20050328
  Serious: Yes (Hospitalization)
  Sender: FDA-Public Use
  Company Number: None

PATIENT
  Age: 57 Year
  Sex: Female

DRUGS (3)
  1. NAFCILLIN    12 GM/240 ML   NSS   UNK [Suspect]
     Dosage: 10 ML  EVERY HOUR   INTRAVENOU
     Route: 042
     Dates: start: 20040401, end: 20040420
  2. TYLENOL [Concomitant]
  3. LOMOTIL [Concomitant]

REACTIONS (1)
  - THROMBOCYTOPENIA [None]
